FAERS Safety Report 25335996 (Version 1)
Quarter: 2025Q2

REPORT INFORMATION
  Report Type: Spontaneous
  Country: CN (occurrence: CN)
  Receive Date: 20250520
  Receipt Date: 20250520
  Transmission Date: 20250717
  Serious: Yes (Other)
  Sender: PFIZER
  Company Number: CN-PFIZER INC-PV202500059272

PATIENT
  Age: 59 Year
  Sex: Female
  Weight: 52 kg

DRUGS (2)
  1. CYTARABINE [Suspect]
     Active Substance: CYTARABINE
     Indication: Symptomatic treatment
     Dosage: 0.1 G, 2X/DAY
     Route: 041
     Dates: start: 20250502, end: 20250505
  2. ETOPOSIDE [Suspect]
     Active Substance: ETOPOSIDE
     Indication: Symptomatic treatment
     Dosage: 0.1G IN THE MORNING AND 0.2G IN THE EVENING,  2X/DAY
     Route: 041
     Dates: start: 20250502, end: 20250505

REACTIONS (2)
  - Laryngeal oedema [Recovered/Resolved]
  - Swollen tongue [Recovered/Resolved]

NARRATIVE: CASE EVENT DATE: 20250504
